FAERS Safety Report 4463824-0 (Version None)
Quarter: 2004Q3

REPORT INFORMATION
  Report Type: 
  Country: None (occurrence: None)
  Receive Date: 20040929
  Receipt Date: 20040917
  Transmission Date: 20050211
  Serious: Yes (Death)
  Sender: FDA-Public Use
  Company Number: 2004EU001746

PATIENT
  Age: 91 Year
  Sex: Male
  Weight: 63 kg

DRUGS (4)
  1. PROGRAF [Suspect]
     Indication: CORNEAL TRANSPLANT
     Dosage: 2.00 MG, ORAL
     Route: 048
     Dates: start: 20010520, end: 20021001
  2. CELLUVISC (CARMELLOSE SODIUM) [Concomitant]
  3. DEXAMETHASONE [Concomitant]
  4. LACRI-LUBE (PETROLATUM, MINERAL OIL LIGHT, LANOLIN) [Concomitant]

REACTIONS (1)
  - PROSTATE CANCER METASTATIC [None]
